FAERS Safety Report 9644153 (Version 1)
Quarter: 2013Q4

REPORT INFORMATION
  Report Type: Spontaneous
  Country: FR (occurrence: FR)
  Receive Date: 20131024
  Receipt Date: 20131024
  Transmission Date: 20140711
  Serious: Yes (Other)
  Sender: FDA-Public Use
  Company Number: FR-ROCHE-1291905

PATIENT
  Age: 62 Year
  Sex: Female

DRUGS (1)
  1. ROACTEMRA [Suspect]
     Indication: RHEUMATOID ARTHRITIS
     Route: 041
     Dates: end: 201309

REACTIONS (2)
  - Rectal haemorrhage [Not Recovered/Not Resolved]
  - Diverticulum intestinal [Not Recovered/Not Resolved]
